FAERS Safety Report 14833209 (Version 2)
Quarter: 2019Q2

REPORT INFORMATION
  Report Type: Spontaneous
  Country: US (occurrence: US)
  Receive Date: 20180501
  Receipt Date: 20190530
  Transmission Date: 20190711
  Serious: Yes (Hospitalization, Other)
  Sender: FDA-Public Use
  Company Number: US-GLAXOSMITHKLINE-US2018GSK071061

PATIENT
  Sex: Female

DRUGS (3)
  1. PREVACID [Suspect]
     Active Substance: LANSOPRAZOLE
     Indication: PRODUCT USED FOR UNKNOWN INDICATION
     Dosage: UNK
     Route: 065
  2. OMEPRAZOLE. [Suspect]
     Active Substance: OMEPRAZOLE
     Indication: GASTROOESOPHAGEAL REFLUX DISEASE
     Dosage: 20 MG, QD
     Route: 048
  3. PREVACID [Suspect]
     Active Substance: LANSOPRAZOLE
     Indication: PRODUCT USED FOR UNKNOWN INDICATION
     Dosage: UNK
     Route: 065

REACTIONS (15)
  - Pyelocaliectasis [Unknown]
  - Proteinuria [Unknown]
  - Kidney infection [Unknown]
  - Renal tubular necrosis [Unknown]
  - Dysuria [Unknown]
  - Nephropathy [Unknown]
  - Chronic kidney disease [Unknown]
  - Ureteric stenosis [Unknown]
  - Polyuria [Unknown]
  - Renal pain [Unknown]
  - Renal failure [Unknown]
  - Hydronephrosis [Unknown]
  - Kidney enlargement [Unknown]
  - Acute kidney injury [Unknown]
  - Urine output decreased [Unknown]
